FAERS Safety Report 4366548-3 (Version None)
Quarter: 2004Q2

REPORT INFORMATION
  Report Type: 
  Country: None (occurrence: None)
  Receive Date: 20040527
  Receipt Date: 20040311
  Transmission Date: 20050107
  Serious: Yes (Other)
  Sender: FDA-Public Use
  Company Number: JP-MERCK-0403USA01221

PATIENT
  Age: 73 Year
  Sex: Female

DRUGS (5)
  1. ALFACALCIDOL [Suspect]
     Route: 065
  2. AMLODIPINE BESYLATE [Suspect]
     Route: 065
  3. DOXAZOSIN MESYLATE [Suspect]
     Route: 065
  4. FLUNITRAZEPAM [Suspect]
     Route: 065
  5. ZOCOR [Suspect]
     Route: 048

REACTIONS (3)
  - INTESTINAL PERFORATION [None]
  - JEJUNITIS [None]
  - PERITONITIS [None]
